FAERS Safety Report 6120792-3 (Version None)
Quarter: 2009Q1

REPORT INFORMATION
  Report Type: 
  Country: None (occurrence: None)
  Receive Date: 20090317
  Receipt Date: 20090311
  Transmission Date: 20090719
  Serious: Yes (Death, Other)
  Sender: FDA-Public Use
  Company Number: FR-ELI_LILLY_AND_COMPANY-FR200903002750

PATIENT
  Age: 58 Year
  Sex: Female

DRUGS (3)
  1. GEMZAR [Suspect]
     Indication: LUNG NEOPLASM MALIGNANT
     Dosage: 1000 MG/M2, ON DAY 1, 8 AND 15
     Dates: start: 19970217
  2. CISPLATIN [Concomitant]
     Indication: LUNG NEOPLASM MALIGNANT
     Dosage: 100 MG/M2, ON DAY 15
     Dates: start: 19970201
  3. CISPLATIN [Concomitant]
     Dosage: DOSE DECREASED, ON DAY 15

REACTIONS (3)
  - DRUG TOLERANCE DECREASED [None]
  - METASTASES TO BONE [None]
  - MYOSITIS [None]
